FAERS Safety Report 11568562 (Version 1)
Quarter: 2015Q3

REPORT INFORMATION
  Report Type: Spontaneous
  Country: US (occurrence: None)
  Receive Date: 20150928
  Receipt Date: 20150928
  Transmission Date: 20151125
  Serious: No
  Sender: FDA-Public Use
  Company Number: None

PATIENT
  Age: 68 Year
  Sex: Male

DRUGS (11)
  1. NORTHERA [Suspect]
     Active Substance: DROXIDOPA
     Indication: ORTHOSTATIC HYPOTENSION
     Route: 048
     Dates: start: 201507
  2. VITAMIN D [Concomitant]
     Active Substance: CHOLECALCIFEROL
  3. CARB/LEVO [Concomitant]
     Active Substance: CARBIDOPA\LEVODOPA
  4. COLACE [Concomitant]
     Active Substance: DOCUSATE SODIUM
  5. MAGNESIUM [Concomitant]
     Active Substance: MAGNESIUM
  6. DULOXETINE. [Concomitant]
     Active Substance: DULOXETINE
  7. MIRALAX [Concomitant]
     Active Substance: POLYETHYLENE GLYCOL 3350
  8. SENOKOT [Concomitant]
     Active Substance: SENNOSIDES
  9. VITAMIN B [Concomitant]
     Active Substance: VITAMIN B
  10. STALEVO [Concomitant]
     Active Substance: CARBIDOPA\ENTACAPONE\LEVODOPA
  11. FLUDROCORT [Concomitant]

REACTIONS (4)
  - Fatigue [None]
  - Balance disorder [None]
  - Fall [None]
  - Confusional state [None]
